FAERS Safety Report 21533299 (Version 2)
Quarter: 2022Q4

REPORT INFORMATION
  Report Type: Report from Study
  Country: DK (occurrence: DK)
  Receive Date: 20221101
  Receipt Date: 20221103
  Transmission Date: 20230113
  Serious: Yes (Death, Other)
  Sender: FDA-Public Use
  Company Number: DK-NOVARTISPH-NVSC2022DK243578

PATIENT
  Sex: Male

DRUGS (9)
  1. LUTETIUM LU-177 VIPIVOTIDE TETRAXETAN [Suspect]
     Active Substance: LUTETIUM LU-177 VIPIVOTIDE TETRAXETAN
     Indication: Hormone-refractory prostate cancer
     Dosage: UNK
     Route: 065
  2. GABAPENTIN [Suspect]
     Active Substance: GABAPENTIN
     Indication: Hormone-refractory prostate cancer
     Dosage: UNK
     Route: 065
  3. OXYCONTIN [Suspect]
     Active Substance: OXYCODONE HYDROCHLORIDE
     Indication: Hormone-refractory prostate cancer
     Dosage: UNK
     Route: 065
  4. ENZALUTAMIDE [Suspect]
     Active Substance: ENZALUTAMIDE
     Indication: Hormone-refractory prostate cancer
     Dosage: UNK
     Route: 065
  5. GOSERELIN [Suspect]
     Active Substance: GOSERELIN
     Indication: Hormone-refractory prostate cancer
     Dosage: UNK
     Route: 065
  6. DOCETAXEL [Suspect]
     Active Substance: DOCETAXEL
     Indication: Hormone-refractory prostate cancer
     Dosage: 4 COURSES RESULTNG IN BIOCHEMICAL, CLINICAL AND RADIOGRAPHIC PROGRESSION
     Route: 065
     Dates: start: 20220128, end: 20220404
  7. CABAZITAXEL [Suspect]
     Active Substance: CABAZITAXEL
     Indication: Hormone-refractory prostate cancer
     Dosage: 3 COURSES RESULTNG IN BIOCHEMICAL, CLINICAL AND RADIOGRAPHIC PROGRESSION.
     Route: 065
     Dates: start: 20220425, end: 20220607
  8. XGEVA [Suspect]
     Active Substance: DENOSUMAB
     Indication: Hormone-refractory prostate cancer
     Dosage: UNK
     Route: 065
  9. OXYCODONE [Concomitant]
     Active Substance: OXYCODONE
     Indication: Product used for unknown indication
     Dosage: UNK
     Route: 065

REACTIONS (9)
  - Death [Fatal]
  - Metastases to bone [Unknown]
  - Malignant neoplasm progression [Unknown]
  - Hormone-refractory prostate cancer [Unknown]
  - Metastases to lymph nodes [Unknown]
  - Metastases to lung [Unknown]
  - Spinal cord compression [Recovered/Resolved]
  - Hepatotoxicity [Unknown]
  - Overdose [Unknown]

NARRATIVE: CASE EVENT DATE: 20200601
